FAERS Safety Report 6200438-6 (Version None)
Quarter: 2009Q2

REPORT INFORMATION
  Report Type: 
  Country: None (occurrence: None)
  Receive Date: 20090522
  Receipt Date: 20090513
  Transmission Date: 20091009
  Serious: Yes (Hospitalization, Other)
  Sender: FDA-Public Use
  Company Number: US-AMGEN-US248779

PATIENT
  Sex: Female

DRUGS (1)
  1. ENBREL [Suspect]
     Indication: PSORIATIC ARTHROPATHY
     Route: 058
     Dates: start: 20060901

REACTIONS (4)
  - CAESAREAN SECTION [None]
  - PRE-ECLAMPSIA [None]
  - PREMATURE LABOUR [None]
  - PSORIATIC ARTHROPATHY [None]
